FAERS Safety Report 23804657 (Version 4)
Quarter: 2024Q3

REPORT INFORMATION
  Report Type: Spontaneous
  Country: US (occurrence: US)
  Receive Date: 20240501
  Receipt Date: 20240802
  Transmission Date: 20241017
  Serious: Yes (Hospitalization, Other)
  Sender: VERTEX
  Company Number: AR-VERTEX PHARMACEUTICALS-2024-006131

PATIENT
  Age: 31 Year
  Sex: Female

DRUGS (1)
  1. TRIKAFTA [Suspect]
     Active Substance: ELEXACAFTOR\IVACAFTOR\TEZACAFTOR
     Indication: Cystic fibrosis
     Dosage: STANDARD DOSAGE REGIMEN
     Route: 048
     Dates: start: 20200127

REACTIONS (2)
  - Pituitary tumour benign [Recovering/Resolving]
  - Cushing^s syndrome [Unknown]

NARRATIVE: CASE EVENT DATE: 20230901
